FAERS Safety Report 10160665 (Version 2)
Quarter: 2014Q2

REPORT INFORMATION
  Report Type: Spontaneous
  Country: None (occurrence: GB)
  Receive Date: 20140508
  Receipt Date: 20140520
  Transmission Date: 20141212
  Serious: Yes (Hospitalization)
  Sender: FDA-Public Use
  Company Number: GB-EISAI INC-E2007-01667-SPO-GB

PATIENT
  Age: 6 Year
  Sex: Male
  Weight: 17.9 kg

DRUGS (4)
  1. FYCOMPA (PERAMPANEL) [Suspect]
     Indication: CONVULSION
     Route: 048
     Dates: start: 20140428, end: 20140429
  2. SODIUM VALPROATE [Concomitant]
     Indication: PRODUCT USED FOR UNKNOWN INDICATION
     Route: 065
  3. ABIDEC [Concomitant]
     Indication: PRODUCT USED FOR UNKNOWN INDICATION
     Dosage: UNKNOWN
     Route: 065
  4. GAVISCON [Concomitant]
     Indication: PRODUCT USED FOR UNKNOWN INDICATION
     Dosage: 2.5 ML
     Route: 065

REACTIONS (1)
  - Status epilepticus [Recovered/Resolved]
